FAERS Safety Report 4504793-4 (Version None)
Quarter: 2004Q4

REPORT INFORMATION
  Report Type: 
  Country: None (occurrence: None)
  Receive Date: 20041118
  Receipt Date: 20041110
  Transmission Date: 20050328
  Serious: Yes (Death, Life-Threatening, Hospitalization, Disabling)
  Sender: FDA-Public Use
  Company Number: US-MERCK-0411USA01948

PATIENT
  Age: 73 Year
  Sex: Male

DRUGS (8)
  1. VIOXX [Suspect]
     Indication: PAIN MANAGEMENT
     Route: 048
  2. EPOGEN [Concomitant]
     Route: 065
  3. LORAZEPAN [Concomitant]
     Route: 065
  4. OXYCONTIN [Concomitant]
     Route: 065
  5. OXYCODONE [Concomitant]
     Route: 065
  6. [THERAPY UNSPECIFIED] [Concomitant]
     Route: 051
  7. [THERAPY UNSPECIFIED] [Concomitant]
     Route: 042
  8. THALIDOMIDE [Concomitant]
     Route: 065

REACTIONS (1)
  - CEREBROVASCULAR ACCIDENT [None]
